FAERS Safety Report 23822874 (Version 1)
Quarter: 2024Q2

REPORT INFORMATION
  Report Type: Spontaneous
  Country: LU (occurrence: LU)
  Receive Date: 20240506
  Receipt Date: 20240506
  Transmission Date: 20240716
  Serious: Yes (Disabling, Other)
  Sender: FDA-Public Use
  Company Number: None

PATIENT
  Age: 54 Year
  Sex: Male
  Weight: 95 kg

DRUGS (8)
  1. RISPERDAL [Suspect]
     Active Substance: RISPERIDONE
     Indication: Depression
     Route: 048
     Dates: end: 202105
  2. COMIRNATY (TOZINAMERAN) [Suspect]
     Active Substance: TOZINAMERAN
     Indication: COVID-19 immunisation
     Dosage: D1
     Route: 030
     Dates: start: 20210505, end: 20210505
  3. COMIRNATY (TOZINAMERAN) [Suspect]
     Active Substance: TOZINAMERAN
     Dosage: D2
     Route: 030
     Dates: start: 20210602, end: 20210602
  4. ESCITALOPRAM OXALATE [Suspect]
     Active Substance: ESCITALOPRAM OXALATE
     Indication: Depression
     Route: 048
     Dates: start: 202009, end: 202105
  5. NEXIUM [Concomitant]
     Active Substance: ESOMEPRAZOLE MAGNESIUM
  6. ATARAX [Concomitant]
     Active Substance: HYDROXYZINE HYDROCHLORIDE
  7. SPIKEVAX [Concomitant]
     Indication: COVID-19 immunisation
     Dosage: R1 (0.5 DOSE A PRIORI)
     Route: 030
     Dates: start: 20220104, end: 20220104
  8. PERINDOPRIL ARGININE [Concomitant]
     Active Substance: PERINDOPRIL ARGININE

REACTIONS (9)
  - Headache [Unknown]
  - Neck pain [Unknown]
  - Disturbance in attention [Recovering/Resolving]
  - Antidepressant discontinuation syndrome [Unknown]
  - Arthralgia [Unknown]
  - Nervousness [Recovering/Resolving]
  - Taste disorder [Unknown]
  - Fatigue [Not Recovered/Not Resolved]
  - Speech disorder [Recovering/Resolving]

NARRATIVE: CASE EVENT DATE: 20210501
